FAERS Safety Report 4898305-3 (Version None)
Quarter: 2006Q1

REPORT INFORMATION
  Report Type: 
  Country: None (occurrence: None)
  Receive Date: 20060106
  Receipt Date: 20050518
  Transmission Date: 20060701
  Serious: Yes (Other)
  Sender: FDA-Public Use
  Company Number: HQWYE910724MAY05

PATIENT
  Age: 16 Year
  Sex: Female
  Weight: 59.02 kg

DRUGS (1)
  1. PRIMATENE MIST [Suspect]
     Indication: ASTHMA
     Dosage: 1 PUFF 1X PER 1 DAY, INHALATION
     Route: 055
     Dates: start: 20050511, end: 20050511

REACTIONS (1)
  - CHEST PAIN [None]
